FAERS Safety Report 6264139-0 (Version None)
Quarter: 2009Q3

REPORT INFORMATION
  Report Type: 
  Country: None (occurrence: None)
  Receive Date: 20090710
  Receipt Date: 20090629
  Transmission Date: 20100115
  Serious: Yes (Hospitalization, Other)
  Sender: FDA-Public Use
  Company Number: AR-PFIZER INC-2006067219

PATIENT
  Age: 56 Year

DRUGS (3)
  1. SUNITINIB MALATE [Suspect]
     Indication: RENAL CELL CARCINOMA
     Dosage: 50 MG, 4 WEEKS ON/ 2 WEEKS OFF
     Route: 048
     Dates: start: 20060417, end: 20060514
  2. LEVOTHYROXINE SODIUM [Concomitant]
     Route: 048
  3. KLOSIDOL [Concomitant]
     Route: 048
     Dates: start: 20060519, end: 20060519

REACTIONS (2)
  - HEPATIC FAILURE [None]
  - LEFT VENTRICULAR DYSFUNCTION [None]
